FAERS Safety Report 23487890 (Version 1)
Quarter: 2024Q1

REPORT INFORMATION
  Report Type: Spontaneous
  Country: GB (occurrence: GB)
  Receive Date: 20240206
  Receipt Date: 20240206
  Transmission Date: 20240409
  Serious: Yes (Other)
  Sender: FDA-Public Use
  Company Number: GB-OPELLA-2024OHG001350

PATIENT
  Age: 45 Year
  Sex: Male

DRUGS (2)
  1. ACETAMINOPHEN [Suspect]
     Active Substance: ACETAMINOPHEN
     Indication: Product used for unknown indication
     Route: 065
  2. FEXOFENADINE HYDROCHLORIDE [Suspect]
     Active Substance: FEXOFENADINE HYDROCHLORIDE
     Indication: Hypersensitivity
     Route: 065
     Dates: start: 202103, end: 20231225

REACTIONS (5)
  - Plasma cell myeloma [Not Recovered/Not Resolved]
  - Dyspnoea [Unknown]
  - Arthralgia [Recovered/Resolved]
  - Swelling [Recovered/Resolved]
  - Muscle spasms [Recovering/Resolving]
